FAERS Safety Report 17756410 (Version 1)
Quarter: 2020Q2

REPORT INFORMATION
  Report Type: Spontaneous
  Country: FR (occurrence: FR)
  Receive Date: 20200507
  Receipt Date: 20200507
  Transmission Date: 20200714
  Serious: Yes (Death, Hospitalization)
  Sender: FDA-Public Use
  Company Number: FR-CADILA HEALTHCARE LIMITED-FR-ZYDUS-022451

PATIENT

DRUGS (12)
  1. KARDEGIC [Concomitant]
     Active Substance: ASPIRIN DL-LYSINE
     Dosage: 75 MG POWDER FOR ORAL SOLUTION IN A SACHET
  2. COLCHIMAX [Concomitant]
  3. MELOXICAM. [Suspect]
     Active Substance: MELOXICAM
     Indication: PRODUCT USED FOR UNKNOWN INDICATION
     Route: 048
     Dates: start: 20171124, end: 20171130
  4. ALLOPURINOL. [Suspect]
     Active Substance: ALLOPURINOL
     Indication: HYPERURICAEMIA
     Dosage: (INTERVAL :1 DAYS)
     Route: 048
     Dates: start: 20171130, end: 20171203
  5. PRAVASTATINE [Concomitant]
     Active Substance: PRAVASTATIN
  6. VALSARTAN. [Concomitant]
     Active Substance: VALSARTAN
  7. ACUPAN [Suspect]
     Active Substance: NEFOPAM HYDROCHLORIDE
     Indication: PAIN MANAGEMENT
     Route: 048
     Dates: start: 20171202
  8. FEBUXOSTAT. [Concomitant]
     Active Substance: FEBUXOSTAT
     Dosage: 80 MG FILM-COATED TABLETS
  9. FUROSEMIDE. [Concomitant]
     Active Substance: FUROSEMIDE
  10. CONTRAMAL [Suspect]
     Active Substance: TRAMADOL HYDROCHLORIDE
     Indication: PAIN MANAGEMENT
     Route: 048
     Dates: start: 20171202
  11. NICORANDIL [Concomitant]
     Active Substance: NICORANDIL
  12. EUTHYROX [Concomitant]
     Active Substance: LEVOTHYROXINE SODIUM
     Dosage: 50 MICROGRAMS TABLETS

REACTIONS (3)
  - Hypotension [Fatal]
  - Fixed eruption [Fatal]
  - Rash erythematous [Fatal]

NARRATIVE: CASE EVENT DATE: 20171202
